FAERS Safety Report 25439113 (Version 2)
Quarter: 2025Q4

REPORT INFORMATION
  Report Type: Spontaneous
  Country: US (occurrence: US)
  Receive Date: 20250616
  Receipt Date: 20251007
  Transmission Date: 20260117
  Serious: Yes (Death, Life-Threatening, Hospitalization)
  Sender: MERCK SHARP & DOHME LLC
  Company Number: US-009507513-2294226

PATIENT
  Sex: Male

DRUGS (1)
  1. KEYTRUDA [Suspect]
     Active Substance: PEMBROLIZUMAB
     Indication: Lung neoplasm malignant
     Route: 042
     Dates: start: 202411, end: 202411

REACTIONS (12)
  - Malignant neoplasm progression [Fatal]
  - Adverse drug reaction [Unknown]
  - Oedema [Unknown]
  - Peripheral swelling [Unknown]
  - Rash [Unknown]
  - Pneumonia [Unknown]
  - Cough [Unknown]
  - Insomnia [Unknown]
  - Muscle spasms [Unknown]
  - Diarrhoea [Unknown]
  - Decreased appetite [Unknown]
  - Dizziness [Unknown]

NARRATIVE: CASE EVENT DATE: 20240101
